FAERS Safety Report 12550219 (Version 2)
Quarter: 2016Q3

REPORT INFORMATION
  Report Type: Spontaneous
  Country: IN (occurrence: IN)
  Receive Date: 20160712
  Receipt Date: 20160728
  Transmission Date: 20161109
  Serious: Yes (Life-Threatening, Other)
  Sender: FDA-Public Use
  Company Number: IN-WATSON-2016-15009

PATIENT
  Age: 6 Month
  Sex: Female
  Weight: 7.2 kg

DRUGS (10)
  1. ATRACURIUM (UNKNOWN) [Suspect]
     Active Substance: ATRACURIUM
     Dosage: 0.5 MG/KG, UNK
     Route: 065
  2. SUCCINYLCHOLINE [Suspect]
     Active Substance: SUCCINYLCHOLINE
     Indication: GENERAL ANAESTHESIA
     Dosage: 15 MG, TOTAL
     Route: 042
  3. ATRACURIUM (UNKNOWN) [Suspect]
     Active Substance: ATRACURIUM
     Indication: MAINTENANCE OF ANAESTHESIA
     Dosage: 0.1 MG/KG, UNK
     Route: 065
  4. PROPOFOL (UNKNOWN) [Suspect]
     Active Substance: PROPOFOL
     Indication: GENERAL ANAESTHESIA
     Dosage: 2 MG/KG, Q1H
     Route: 042
  5. GLYCOPYRROLATE /00196201/ [Concomitant]
     Active Substance: GLYCOPYRRONIUM
     Indication: PREMEDICATION
     Dosage: 0.075 MG, UNK
     Route: 042
  6. PROPOFOL (UNKNOWN) [Suspect]
     Active Substance: PROPOFOL
     Dosage: 15 MG, TOTAL
     Route: 042
  7. FENTANYL (UNKNOWN) [Suspect]
     Active Substance: FENTANYL
     Indication: GENERAL ANAESTHESIA
     Dosage: 2 ?G/KG, Q1H
     Route: 065
  8. TRAMADOL. [Concomitant]
     Active Substance: TRAMADOL
     Indication: PREMEDICATION
     Dosage: 15 MG, UNK
     Route: 042
  9. ISOLYTE P IN DEXTROSE [Concomitant]
     Active Substance: DEXTROSE\MAGNESIUM CHLORIDE\POTASSIUM CHLORIDE\POTASSIUM PHOSPHATE, DIBASIC\SODIUM ACETATE
     Indication: PRODUCT USED FOR UNKNOWN INDICATION
     Dosage: UNK
     Route: 065
  10. HALOTHANE. [Suspect]
     Active Substance: HALOTHANE
     Indication: MAINTENANCE OF ANAESTHESIA
     Dosage: 0.6-1% IN 100% OXYGEN
     Route: 055

REACTIONS (1)
  - Hyperthermia malignant [Recovered/Resolved]
